FAERS Safety Report 7633550-5 (Version None)
Quarter: 2011Q3

REPORT INFORMATION
  Report Type: 
  Country: None (occurrence: None)
  Receive Date: 20110725
  Receipt Date: 20110705
  Transmission Date: 20111222
  Serious: Yes (Hospitalization)
  Sender: FDA-Public Use
  Company Number: US-GLAXOSMITHKLINE-A0748244A

PATIENT
  Age: 60 Year
  Sex: Female
  Weight: 65.9 kg

DRUGS (8)
  1. HUMALOG [Concomitant]
  2. TOPROL-XL [Concomitant]
  3. INSULIN [Concomitant]
  4. ATENOLOL [Concomitant]
  5. CLONIDINE [Concomitant]
  6. ZETIA [Concomitant]
  7. AVANDIA [Suspect]
     Indication: DIABETES MELLITUS
     Dosage: 8MG PER DAY
     Route: 048
     Dates: end: 20070101
  8. DIOVAN [Concomitant]

REACTIONS (2)
  - CARDIAC FAILURE CONGESTIVE [None]
  - ARRHYTHMIA [None]
